FAERS Safety Report 7999412-9 (Version None)
Quarter: 2011Q4

REPORT INFORMATION
  Report Type: 
  Country: None (occurrence: None)
  Receive Date: 20111221
  Receipt Date: 20111215
  Transmission Date: 20120403
  Serious: Yes (Hospitalization, Other)
  Sender: FDA-Public Use
  Company Number: US-ELI_LILLY_AND_COMPANY-US201112005009

PATIENT
  Sex: Female

DRUGS (2)
  1. HUMALOG [Suspect]
     Indication: DIABETES MELLITUS
     Dosage: UNK, OTHER
  2. HUMULIN R [Suspect]
     Indication: DIABETES MELLITUS

REACTIONS (5)
  - GASTRIC HAEMORRHAGE [None]
  - CARDIAC PACEMAKER INSERTION [None]
  - DIALYSIS [None]
  - EXPIRED DRUG ADMINISTERED [None]
  - DIALYSIS DEVICE INSERTION [None]
